FAERS Safety Report 8443564-3 (Version None)
Quarter: 2012Q2

REPORT INFORMATION
  Report Type: 
  Country: None (occurrence: None)
  Receive Date: 20120618
  Receipt Date: 20120613
  Transmission Date: 20120825
  Serious: No
  Sender: FDA-Public Use
  Company Number: US-PFIZER INC-2012143827

PATIENT
  Sex: Male
  Weight: 79.365 kg

DRUGS (1)
  1. VIAGRA [Suspect]
     Indication: ERECTILE DYSFUNCTION
     Dosage: HALF A TABLET OF 100MG, AS NEEDED
     Dates: start: 20060101

REACTIONS (1)
  - DRUG INEFFECTIVE [None]
